FAERS Safety Report 14683515 (Version 1)
Quarter: 2018Q1

REPORT INFORMATION
  Report Type: Spontaneous
  Country: DE (occurrence: DE)
  Receive Date: 20180327
  Receipt Date: 20180327
  Transmission Date: 20180509
  Serious: Yes (Hospitalization, Other)
  Sender: FDA-Public Use
  Company Number: DE-SUN PHARMACEUTICAL INDUSTRIES LTD-2018RR-168338

PATIENT
  Age: 57 Year
  Sex: Male

DRUGS (2)
  1. COPAXONE [Suspect]
     Active Substance: GLATIRAMER ACETATE
     Indication: MULTIPLE SCLEROSIS
     Dosage: DAILY DOSE: 120 MG MILLIGRAM(S) EVERY WEEK
     Route: 065
     Dates: start: 20170426, end: 20171017
  2. TAMSULOSIN [Suspect]
     Active Substance: TAMSULOSIN
     Indication: DYSURIA
     Dosage: .4 MILLIGRAM DAILY;
     Route: 048
     Dates: start: 201709

REACTIONS (4)
  - Multiple sclerosis [Unknown]
  - Back pain [Recovered/Resolved]
  - Multiple sclerosis relapse [Recovering/Resolving]
  - Musculoskeletal discomfort [Recovering/Resolving]

NARRATIVE: CASE EVENT DATE: 201709
